FAERS Safety Report 6840743-3 (Version None)
Quarter: 2010Q3

REPORT INFORMATION
  Report Type: 
  Country: None (occurrence: None)
  Receive Date: 20100714
  Receipt Date: 20100702
  Transmission Date: 20110219
  Serious: Yes (Other)
  Sender: FDA-Public Use
  Company Number: DE-PFIZER INC-2010083374

PATIENT
  Age: 25 Year
  Sex: Male

DRUGS (2)
  1. VIAGRA [Suspect]
     Indication: ERECTILE DYSFUNCTION
     Dosage: 100 MG, AS NEEDED
     Route: 048
  2. VIAGRA [Suspect]
     Dosage: 400 MG, AS NEEDED

REACTIONS (6)
  - CARDIAC DISORDER [None]
  - HEADACHE [None]
  - HOT FLUSH [None]
  - INTENTIONAL DRUG MISUSE [None]
  - TRANSAMINASES INCREASED [None]
  - VISUAL IMPAIRMENT [None]
